FAERS Safety Report 9887984 (Version 1)
Quarter: 2014Q1

REPORT INFORMATION
  Report Type: Spontaneous
  Country: NL (occurrence: NL)
  Receive Date: 20140211
  Receipt Date: 20140211
  Transmission Date: 20141002
  Serious: Yes (Hospitalization)
  Sender: FDA-Public Use
  Company Number: NL-TEVA-460950ISR

PATIENT
  Age: 49 Year
  Sex: Male

DRUGS (17)
  1. CIPROFLOXACIN [Suspect]
     Indication: ANTIBIOTIC THERAPY
     Route: 065
  2. CLOZAPINE [Interacting]
     Indication: SCHIZOPHRENIA
     Dosage: 150 MILLIGRAM DAILY;
     Route: 065
  3. CLOZAPINE [Interacting]
     Indication: SCHIZOPHRENIA
     Dosage: 75MG ON DAY 1
     Route: 065
  4. CLOZAPINE [Interacting]
     Indication: SCHIZOPHRENIA
     Dosage: 300MG ON DAY 0
     Route: 065
  5. AMOXICILLIN [Concomitant]
     Indication: ANTIBIOTIC THERAPY
     Route: 065
  6. METRONIDAZOLE [Concomitant]
     Indication: ANTIBIOTIC THERAPY
     Route: 065
  7. MIDAZOLAM [Concomitant]
     Route: 065
  8. OXAZEPAM [Concomitant]
     Route: 065
  9. PANTOPRAZOLE [Concomitant]
     Route: 065
  10. PROMETHAZINE [Concomitant]
     Route: 065
  11. TAMSULOSIN [Concomitant]
     Route: 065
  12. CLOMIPRAMINE [Concomitant]
     Dosage: 50 MG/DAY
     Route: 065
  13. CLOMIPRAMINE [Concomitant]
     Dosage: 100MG ON DAY 0
     Route: 065
  14. FORMOTEROL [Concomitant]
     Route: 065
  15. TIOTROPIUM BROMIDE [Concomitant]
     Route: 065
  16. MOLAXOLE [Concomitant]
     Route: 065
  17. NITROFURANTOIN [Concomitant]
     Indication: URINARY TRACT INFECTION
     Route: 065

REACTIONS (4)
  - Toxicity to various agents [Recovered/Resolved]
  - Drug interaction [Recovered/Resolved]
  - Delirium [Recovered/Resolved]
  - Extra dose administered [Recovered/Resolved]
